FAERS Safety Report 14276195 (Version 2)
Quarter: 2018Q1

REPORT INFORMATION
  Report Type: Spontaneous
  Country: DE (occurrence: DE)
  Receive Date: 20171212
  Receipt Date: 20180214
  Transmission Date: 20180508
  Serious: Yes (Death)
  Sender: FDA-Public Use
  Company Number: DE-ROCHE-2037427

PATIENT
  Age: 73 Year
  Sex: Male
  Weight: 79.4 kg

DRUGS (9)
  1. FORADIL [Concomitant]
     Active Substance: FORMOTEROL FUMARATE
     Indication: ASTHMA
     Route: 065
  2. RAMIPRIL. [Concomitant]
     Active Substance: RAMIPRIL
  3. TOREM [Suspect]
     Active Substance: TORSEMIDE
     Indication: PRODUCT USED FOR UNKNOWN INDICATION
     Dosage: 200 UNIT NOT REPORTED
     Route: 048
     Dates: end: 20171127
  4. BELOC ZOK [Concomitant]
     Active Substance: METOPROLOL SUCCINATE
     Dosage: 23.75 UNIT NOT REPORTED
     Route: 047
     Dates: end: 20171127
  5. MABTHERA [Suspect]
     Active Substance: RITUXIMAB
     Indication: PRODUCT USED FOR UNKNOWN INDICATION
     Route: 042
     Dates: start: 20171110
  6. VITAMIN K [Concomitant]
     Active Substance: PHYTONADIONE
     Route: 065
  7. MABTHERA [Suspect]
     Active Substance: RITUXIMAB
     Route: 042
     Dates: start: 20171117
  8. ATORVASTIN [Concomitant]
     Active Substance: ATORVASTATIN
     Indication: BLOOD CHOLESTEROL INCREASED
     Dosage: 40 UNIT NOT REPORTED
     Route: 048
  9. ASPIRIN. [Concomitant]
     Active Substance: ASPIRIN
     Dosage: 100 UNIT NOT REPORTED
     Route: 048
     Dates: end: 20171127

REACTIONS (3)
  - Gastrointestinal haemorrhage [Fatal]
  - Cardiac failure [Fatal]
  - Gastritis erosive [Fatal]

NARRATIVE: CASE EVENT DATE: 20171128
